FAERS Safety Report 13916679 (Version 1)
Quarter: 2017Q3

REPORT INFORMATION
  Report Type: Spontaneous
  Country: HR (occurrence: HR)
  Receive Date: 20170829
  Receipt Date: 20170829
  Transmission Date: 20171127
  Serious: Yes (Hospitalization, Other)
  Sender: FDA-Public Use
  Company Number: HR-TEVA-799766ACC

PATIENT
  Age: 3 Year
  Sex: Male

DRUGS (1)
  1. SALBUTAMOL PLIVA [Suspect]
     Active Substance: ALBUTEROL
     Route: 055
     Dates: start: 20170102

REACTIONS (3)
  - Electrocardiogram QRS complex prolonged [Unknown]
  - Accidental overdose [Unknown]
  - Blood potassium decreased [Unknown]

NARRATIVE: CASE EVENT DATE: 20170102
